FAERS Safety Report 9397357 (Version 1)
Quarter: 2013Q3

REPORT INFORMATION
  Report Type: Spontaneous
  Country: US (occurrence: None)
  Receive Date: 20130708
  Receipt Date: 20130708
  Transmission Date: 20140515
  Serious: Yes (Death, Hospitalization)
  Sender: FDA-Public Use
  Company Number: 2013US0247

PATIENT
  Age: 19 Year
  Sex: Male
  Weight: 45 kg

DRUGS (25)
  1. ORFADIN [Suspect]
     Indication: TYROSINAEMIA
     Dosage: 2 IN 1 D
     Route: 050
     Dates: start: 19940330
  2. CLONAZEPAM [Concomitant]
  3. ATIVAN [Concomitant]
  4. CIPROFLOXACIN [Concomitant]
  5. DILANTIN [Concomitant]
  6. DIASTAT [Concomitant]
  7. ALBUTEROL [Concomitant]
  8. DULCOLAX (BISACODYL) [Concomitant]
  9. CYTRA-K [Concomitant]
  10. CYTRA-K [Concomitant]
  11. VITAMIN D [Concomitant]
  12. HYDROCORTISONE AND EUCERIN [Concomitant]
  13. HYDROCORTISONE AND EUCERIN [Concomitant]
  14. MOTRIN IB [Concomitant]
  15. LACTINEX [Concomitant]
  16. KEPPRA [Concomitant]
  17. LORATADIN [Concomitant]
  18. NASONEX [Concomitant]
  19. NYSTATIN [Concomitant]
  20. MIRALAX [Concomitant]
  21. SIMETHICONE [Concomitant]
  22. TOPAXMAX [Concomitant]
  23. BALMEX [Concomitant]
  24. LEVETIRACETAM [Concomitant]
  25. ANTIBIOTICS [Concomitant]

REACTIONS (4)
  - Metabolic disorder [None]
  - Convulsion [None]
  - Respiratory distress [None]
  - Mental retardation [None]
